FAERS Safety Report 18466421 (Version 4)
Quarter: 2020Q4

REPORT INFORMATION
  Report Type: Other
  Country: JP (occurrence: JP)
  Receive Date: 20201104
  Receipt Date: 20201120
  Transmission Date: 20210114
  Serious: Yes (Death, Hospitalization, Other)
  Sender: FDA-Public Use
  Company Number: JP-ROCHE-2706578

PATIENT
  Age: 57 Year
  Sex: Female

DRUGS (1)
  1. KADCYLA [Suspect]
     Active Substance: ADO-TRASTUZUMAB EMTANSINE
     Indication: BREAST CANCER
     Route: 041

REACTIONS (8)
  - Long QT syndrome [Recovering/Resolving]
  - Torsade de pointes [Recovering/Resolving]
  - Pathological fracture [Unknown]
  - Nausea [Unknown]
  - Sleep apnoea syndrome [Unknown]
  - Hypokalaemia [Unknown]
  - Metastases to meninges [Fatal]
  - Decreased appetite [Unknown]
